FAERS Safety Report 23730601 (Version 1)
Quarter: 2024Q2

REPORT INFORMATION
  Report Type: Other
  Country: US (occurrence: None)
  Receive Date: 20240411
  Receipt Date: 20240411
  Transmission Date: 20240716
  Serious: No
  Sender: FDA-Public Use
  Company Number: US-ROCHE-3494421

PATIENT
  Age: 32 Year
  Sex: Female
  Weight: 77.18 kg

DRUGS (4)
  1. OCREVUS [Suspect]
     Active Substance: OCRELIZUMAB
     Indication: Relapsing-remitting multiple sclerosis
     Dosage: SUBSEQUENT INFUSION EVERY 6 MONTHS?DATE OF TREATMENT: 29/DEC/2023
     Route: 042
     Dates: start: 20231215, end: 20231229
  2. LEVOTHYROXINE [Concomitant]
     Active Substance: LEVOTHYROXINE\LEVOTHYROXINE SODIUM
     Indication: Autoimmune thyroiditis
  3. IRON [Concomitant]
     Active Substance: IRON
  4. VITAMIN D2 [Concomitant]
     Active Substance: ERGOCALCIFEROL

REACTIONS (17)
  - Heart rate increased [Recovered/Resolved]
  - Blood pressure increased [Recovered/Resolved]
  - Dehydration [Unknown]
  - Muscle tightness [Recovered/Resolved]
  - Hypersensitivity [Recovered/Resolved]
  - Withdrawal syndrome [Not Recovered/Not Resolved]
  - Anger [Not Recovered/Not Resolved]
  - Autoscopy [Not Recovered/Not Resolved]
  - Tremor [Not Recovered/Not Resolved]
  - Temperature regulation disorder [Not Recovered/Not Resolved]
  - Anxiety [Not Recovered/Not Resolved]
  - Bipolar disorder [Unknown]
  - Demyelination [Unknown]
  - Hypothyroidism [Unknown]
  - Palpitations [Unknown]
  - Fear [Unknown]
  - Hyperhidrosis [Unknown]

NARRATIVE: CASE EVENT DATE: 20231215
